FAERS Safety Report 23145767 (Version 2)
Quarter: 2023Q4

REPORT INFORMATION
  Report Type: Report from Study
  Country: CN (occurrence: CN)
  Receive Date: 20231103
  Receipt Date: 20231116
  Transmission Date: 20240110
  Serious: Yes (Hospitalization)
  Sender: FDA-Public Use
  Company Number: CN-BEIGENE AUS PTY LTD-BGN-2023-002819

PATIENT
  Age: 79 Year
  Sex: Male
  Weight: 60 kg

DRUGS (33)
  1. CARBOPLATIN [Suspect]
     Active Substance: CARBOPLATIN
     Dosage: 366.4 MG
     Route: 042
     Dates: start: 20230307, end: 20230307
  2. CARBOPLATIN [Suspect]
     Active Substance: CARBOPLATIN
     Indication: Non-small cell lung cancer
     Dosage: 440 MG
     Route: 042
     Dates: start: 20221104
  3. PACLITAXEL [Suspect]
     Active Substance: PACLITAXEL
     Indication: Non-small cell lung cancer metastatic
     Dosage: 165 MG
     Route: 042
     Dates: start: 20221104
  4. PACLITAXEL [Suspect]
     Active Substance: PACLITAXEL
     Dosage: 175 MG
     Route: 042
     Dates: start: 20230307, end: 20230307
  5. OCIPERLIMAB [Suspect]
     Active Substance: OCIPERLIMAB
     Indication: Product used for unknown indication
     Dosage: CODE NOT BROKEN
     Route: 042
     Dates: start: 20221104
  6. TISLELIZUMAB [Suspect]
     Active Substance: TISLELIZUMAB
     Indication: Non-small cell lung cancer metastatic
     Dosage: 200 MG
     Route: 042
     Dates: start: 20221104
  7. TISLELIZUMAB [Suspect]
     Active Substance: TISLELIZUMAB
     Dosage: 200 MG
     Route: 042
     Dates: start: 20230307, end: 20230307
  8. ACETYLCYSTEINE [Concomitant]
     Active Substance: ACETYLCYSTEINE
     Indication: Productive cough
     Dosage: UNK
     Route: 065
     Dates: start: 20230406, end: 20230407
  9. AMBROXOL HYDROCHLORIDE [Concomitant]
     Active Substance: AMBROXOL HYDROCHLORIDE
     Indication: Productive cough
     Dosage: UNK
     Route: 065
     Dates: start: 20230402, end: 20230404
  10. AZITHROMYCIN [Concomitant]
     Active Substance: AZITHROMYCIN
     Indication: Cough
     Dosage: UNK
     Route: 065
     Dates: start: 20230328, end: 20230329
  11. BUDESONIDE [Concomitant]
     Active Substance: BUDESONIDE
     Indication: Productive cough
     Dosage: UNK (AEROSOL)
     Route: 065
     Dates: start: 20230406, end: 20230407
  12. CEFUROXIME SODIUM [Concomitant]
     Active Substance: CEFUROXIME SODIUM
     Indication: Cough
     Dosage: UNK
     Route: 065
     Dates: start: 20230328, end: 20230329
  13. EUCALYPTOL [Concomitant]
     Active Substance: EUCALYPTOL
     Indication: Productive cough
     Dosage: UNK
     Route: 065
     Dates: start: 20230328, end: 20230406
  14. GRANULOCYTE COLONY-STIMULATING FACTOR NOS [Concomitant]
     Active Substance: GRANULOCYTE COLONY-STIMULATING FACTOR NOS
     Indication: White blood cell count decreased
     Dosage: UNK
     Route: 065
     Dates: start: 20230314, end: 20230318
  15. GRANULOCYTE COLONY-STIMULATING FACTOR NOS [Concomitant]
     Active Substance: GRANULOCYTE COLONY-STIMULATING FACTOR NOS
     Indication: Lymphocyte count decreased
  16. GRANULOCYTE COLONY-STIMULATING FACTOR NOS [Concomitant]
     Active Substance: GRANULOCYTE COLONY-STIMULATING FACTOR NOS
     Indication: Neutrophil count decreased
  17. INDAPAMIDE [Concomitant]
     Active Substance: INDAPAMIDE
     Indication: Hypertension
     Dosage: UNK
     Route: 065
     Dates: start: 2012
  18. LACTULOSE [Concomitant]
     Active Substance: LACTULOSE
     Indication: Constipation
     Dosage: UNK
     Route: 065
     Dates: start: 20230307, end: 20230314
  19. LIMONEIN [Concomitant]
     Indication: Productive cough
     Dosage: UNK
     Route: 065
     Dates: start: 20230328, end: 20230406
  20. METHYLPREDNISOLONE SODIUM SUCCINATE [Concomitant]
     Active Substance: METHYLPREDNISOLONE SODIUM SUCCINATE
     Indication: Prophylaxis of nausea and vomiting
     Dosage: UNK
     Route: 065
     Dates: start: 20230307, end: 20230307
  21. MONTELUKAST SODIUM [Concomitant]
     Active Substance: MONTELUKAST SODIUM
     Indication: Cough
     Dosage: UNK
     Route: 065
     Dates: start: 20230328, end: 20230406
  22. NIMESULIDE [Concomitant]
     Active Substance: NIMESULIDE
     Indication: Cough
     Dosage: UNK
     Route: 065
     Dates: start: 20230328, end: 20230330
  23. OMEPRAZOLE SODIUM [Concomitant]
     Active Substance: OMEPRAZOLE SODIUM
     Indication: Prophylaxis
     Dosage: UNK
     Route: 065
     Dates: start: 20230306, end: 20230308
  24. OMEPRAZOLE SODIUM [Concomitant]
     Active Substance: OMEPRAZOLE SODIUM
     Dosage: UNK, INJECTION
     Route: 065
     Dates: start: 20230406, end: 20230413
  25. PALONOSETRON HYDROCHLORIDE [Concomitant]
     Active Substance: PALONOSETRON HYDROCHLORIDE
     Indication: Prophylaxis of nausea and vomiting
     Dosage: UNK
     Route: 065
     Dates: start: 20230307, end: 20230307
  26. PINENE [Concomitant]
     Indication: Productive cough
     Dosage: UNK
     Route: 065
     Dates: start: 20230328, end: 20230406
  27. POTASSIUM CHLORIDE [Concomitant]
     Active Substance: POTASSIUM CHLORIDE
     Indication: Hypokalaemia
     Dosage: UNK, INJECTION
     Route: 065
     Dates: start: 20230406, end: 20230413
  28. POTASSIUM CHLORIDE [Concomitant]
     Active Substance: POTASSIUM CHLORIDE
     Dosage: UNK, SUSTAINED-RELEASE TABLETS
     Route: 065
     Dates: start: 20230411
  29. TIOPRONIN [Concomitant]
     Active Substance: TIOPRONIN
     Indication: Hepatobiliary disorder prophylaxis
     Dosage: UNK
     Route: 065
     Dates: start: 20230306, end: 20230308
  30. TIOPRONIN [Concomitant]
     Active Substance: TIOPRONIN
     Indication: Alanine aminotransferase increased
     Dosage: UNK, INJECTION
     Route: 065
     Dates: start: 20230406, end: 20230413
  31. TIOPRONIN [Concomitant]
     Active Substance: TIOPRONIN
     Indication: Aspartate aminotransferase increased
  32. VITAMIN C [Concomitant]
     Active Substance: ASCORBIC ACID
     Indication: Supplementation therapy
     Dosage: UNK
     Route: 065
     Dates: start: 20230406, end: 20230413
  33. VITAMIN B6 [Concomitant]
     Active Substance: PYRIDOXINE HYDROCHLORIDE
     Indication: Supplementation therapy
     Dosage: UNK
     Route: 065
     Dates: start: 20230406, end: 20230413

REACTIONS (1)
  - Pneumonia [Recovered/Resolved]

NARRATIVE: CASE EVENT DATE: 20230406
